FAERS Safety Report 15150171 (Version 1)
Quarter: 2018Q3

REPORT INFORMATION
  Report Type: Spontaneous
  Country: US (occurrence: US)
  Receive Date: 20180716
  Receipt Date: 20180716
  Transmission Date: 20181010
  Serious: Yes (Other)
  Sender: FDA-Public Use
  Company Number: US-ASTRAZENECA-2018SE88344

PATIENT
  Age: 64 Year
  Sex: Female
  Weight: 93 kg

DRUGS (24)
  1. ATORVASTATIN [Concomitant]
     Active Substance: ATORVASTATIN
     Indication: HYPERCHOLESTEROLAEMIA
     Route: 048
     Dates: start: 2008
  2. LORAZEPAM. [Concomitant]
     Active Substance: LORAZEPAM
     Indication: ANXIETY
     Dosage: AS NEEDED EVERY 6 HOURS
     Route: 048
     Dates: start: 2010
  3. OXYGEN. [Concomitant]
     Active Substance: OXYGEN
     Indication: PO2 INCREASED
     Route: 045
     Dates: start: 2008
  4. GLIMEPIRIDE. [Concomitant]
     Active Substance: GLIMEPIRIDE
     Indication: DIABETES MELLITUS
     Route: 048
     Dates: start: 2017
  5. ISOSORBIDE. [Concomitant]
     Active Substance: ISOSORBIDE
     Indication: ANGINA PECTORIS
     Route: 048
     Dates: start: 2008
  6. A SENIOR MULTIVITAMIN [Concomitant]
     Indication: HYPOVITAMINOSIS
     Dosage: 2 PILLS ONCE A DAY
     Route: 048
  7. BYDUREON BCISE [Suspect]
     Active Substance: EXENATIDE
     Indication: DIABETES MELLITUS
     Route: 058
     Dates: start: 20180707
  8. LOSARTAN. [Concomitant]
     Active Substance: LOSARTAN
     Indication: HEART RATE ABNORMAL
     Route: 048
     Dates: start: 2016
  9. PANTOPRAZOLE [Concomitant]
     Active Substance: PANTOPRAZOLE
     Indication: GASTROOESOPHAGEAL REFLUX DISEASE
     Route: 048
     Dates: start: 2009
  10. BYDUREON BCISE [Suspect]
     Active Substance: EXENATIDE
     Indication: BLOOD GLUCOSE ABNORMAL
     Route: 058
     Dates: start: 20180707
  11. METOPROLOL TARTRATE. [Suspect]
     Active Substance: METOPROLOL TARTRATE
     Indication: HYPERTENSION
     Route: 048
     Dates: start: 2008
  12. DOCUSATE [Concomitant]
     Active Substance: DOCUSATE
     Indication: LAXATIVE SUPPORTIVE CARE
     Dosage: THREE AND FIVE 100 MG TABS DAILY
     Route: 048
     Dates: start: 2000
  13. ONDANSETRON [Concomitant]
     Active Substance: ONDANSETRON
     Indication: NAUSEA
     Dosage: 8.0MG AS REQUIRED
     Route: 060
     Dates: start: 2014
  14. LISINOPRIL. [Suspect]
     Active Substance: LISINOPRIL
     Indication: HYPERTENSION
     Dosage: DAILY
     Route: 048
     Dates: start: 2008, end: 2016
  15. GABAPENTIN. [Concomitant]
     Active Substance: GABAPENTIN
     Indication: DIABETIC NEUROPATHY
     Route: 048
     Dates: start: 2011
  16. RANEXA [Concomitant]
     Active Substance: RANOLAZINE
     Indication: ANGINA PECTORIS
     Route: 048
     Dates: start: 2010
  17. LEXAPRO [Concomitant]
     Active Substance: ESCITALOPRAM OXALATE
     Indication: HYPERHIDROSIS
     Route: 048
     Dates: start: 2017
  18. FLAX SEED GROUNDED UP [Concomitant]
     Indication: HYPERCHOLESTEROLAEMIA
     Dosage: 2TBSP DAILY
     Route: 048
     Dates: start: 2010
  19. ONDANSETRON [Concomitant]
     Active Substance: ONDANSETRON
     Indication: VOMITING
     Dosage: 8.0MG AS REQUIRED
     Route: 060
     Dates: start: 2014
  20. NTG (NITROGLYCERINE) [Concomitant]
     Indication: ANGINA PECTORIS
     Dosage: 0.04MG AS REQUIRED
     Route: 060
     Dates: start: 2008
  21. CLOPIDOGREL [Concomitant]
     Active Substance: CLOPIDOGREL BISULFATE
     Indication: PLATELET ADHESIVENESS DECREASED
     Route: 048
     Dates: start: 2008
  22. ISOSORBIDE. [Concomitant]
     Active Substance: ISOSORBIDE
     Indication: HYPERTENSION
     Route: 048
     Dates: start: 2008
  23. SENNASIDE [Concomitant]
     Indication: LAXATIVE SUPPORTIVE CARE
     Dosage: THREE AND FIVE 15 MG TABS DAILY
     Route: 048
     Dates: start: 2000
  24. VITAMIN D [Concomitant]
     Active Substance: CHOLECALCIFEROL
     Indication: VITAMIN D DEFICIENCY
     Route: 048
     Dates: start: 2011

REACTIONS (12)
  - Oxygen saturation decreased [Unknown]
  - Injection site extravasation [Unknown]
  - Injection site pain [Not Recovered/Not Resolved]
  - Blood glucose increased [Unknown]
  - Injection site pruritus [Recovered/Resolved]
  - Diabetes mellitus [Unknown]
  - Underdose [Unknown]
  - Vascular graft complication [Unknown]
  - Nephropathy [Unknown]
  - Injection site haemorrhage [Unknown]
  - Injection site oedema [Recovered/Resolved]
  - Injection site discomfort [Unknown]

NARRATIVE: CASE EVENT DATE: 2008
